FAERS Safety Report 18574675 (Version 1)
Quarter: 2020Q4

REPORT INFORMATION
  Report Type: Spontaneous
  Country: US (occurrence: US)
  Receive Date: 20201203
  Receipt Date: 20201203
  Transmission Date: 20210114
  Serious: No
  Sender: FDA-Public Use
  Company Number: US-LUPIN PHARMACEUTICALS INC.-2020-09412

PATIENT
  Age: 27 Year
  Sex: Female

DRUGS (6)
  1. DICYCLOMINE [Concomitant]
     Active Substance: DICYCLOMINE HYDROCHLORIDE
     Indication: SYMPTOMATIC TREATMENT
     Dosage: UNK
     Route: 065
  2. URSODEOXYCHOLIC ACID [Concomitant]
     Active Substance: URSODIOL
     Indication: SYMPTOMATIC TREATMENT
     Dosage: UNK
     Route: 065
  3. METHYLPREDNISOLONE. [Suspect]
     Active Substance: METHYLPREDNISOLONE
     Indication: CHOLESTASIS
     Dosage: 40 MILLIGRAM, QD
     Route: 042
  4. CHOLESTYRAMINE. [Concomitant]
     Active Substance: CHOLESTYRAMINE
     Indication: SYMPTOMATIC TREATMENT
     Dosage: UNK
     Route: 065
  5. MENTHOLATUM [CAMPHOR;MENTHOL] [Concomitant]
     Indication: SYMPTOMATIC TREATMENT
     Dosage: LOTION
     Route: 065
  6. TRAMADOL. [Concomitant]
     Active Substance: TRAMADOL
     Indication: SYMPTOMATIC TREATMENT
     Dosage: UNK
     Route: 065

REACTIONS (1)
  - Off label use [Unknown]
